FAERS Safety Report 8887076 (Version 1)
Quarter: 2012Q4

REPORT INFORMATION
  Report Type: 
  Country: CA (occurrence: CA)
  Receive Date: 20121105
  Receipt Date: 20121105
  Transmission Date: 20130627
  Serious: Yes (Life-Threatening, Hospitalization)
  Sender: FDA-Public Use
  Company Number: CA-ROCHE-1151430

PATIENT
  Sex: Female

DRUGS (6)
  1. LUCENTIS [Suspect]
     Indication: AGE-RELATED MACULAR DEGENERATION
     Route: 050
     Dates: start: 20121010
  2. OXYGEN [Concomitant]
  3. VENTOLIN [Concomitant]
  4. ADVAIR [Concomitant]
  5. BRIMONIDINE [Concomitant]
  6. XALATAN [Concomitant]

REACTIONS (1)
  - Hypoglycaemia [Recovered/Resolved]
